FAERS Safety Report 12545211 (Version 2)
Quarter: 2016Q3

REPORT INFORMATION
  Report Type: Spontaneous
  Country: FR (occurrence: FR)
  Receive Date: 20160711
  Receipt Date: 20160713
  Transmission Date: 20161109
  Serious: Yes (Other)
  Sender: FDA-Public Use
  Company Number: FR-JNJFOC-20160706122

PATIENT
  Age: 91 Year
  Sex: Female

DRUGS (8)
  1. MOVICOL [Concomitant]
     Active Substance: POLYETHYLENE GLYCOL 3350\POTASSIUM CHLORIDE\SODIUM BICARBONATE\SODIUM CHLORIDE
     Route: 065
  2. RISPERDAL [Suspect]
     Active Substance: RISPERIDONE
     Indication: DELIRIUM
     Route: 048
     Dates: start: 20160617, end: 20160619
  3. LEVOTHYROX [Concomitant]
     Active Substance: LEVOTHYROXINE
     Route: 065
  4. CARDENSIEL [Concomitant]
     Active Substance: BISOPROLOL FUMARATE
     Route: 065
  5. NORMACOL [Concomitant]
     Active Substance: KARAYA GUM
     Route: 065
  6. LAMALINE [Concomitant]
     Active Substance: ACETAMINOPHEN\CAFFEINE\OPIUM
     Route: 065
  7. IMOVANE [Suspect]
     Active Substance: ZOPICLONE
     Indication: INSOMNIA
     Dosage: INITIATED IN EVENING
     Route: 048
     Dates: start: 20160617, end: 20160619
  8. FLUINDIONE [Concomitant]
     Active Substance: FLUINDIONE
     Route: 065

REACTIONS (7)
  - Cheyne-Stokes respiration [Recovered/Resolved]
  - Hypotonia [Recovered/Resolved]
  - Drug ineffective for unapproved indication [Unknown]
  - Product use issue [Unknown]
  - Fall [Unknown]
  - Off label use [Unknown]
  - Altered state of consciousness [Recovered/Resolved]

NARRATIVE: CASE EVENT DATE: 20160618
